FAERS Safety Report 11130133 (Version 1)
Quarter: 2015Q2

REPORT INFORMATION
  Report Type: Spontaneous
  Country: JP (occurrence: JP)
  Receive Date: 20150521
  Receipt Date: 20150521
  Transmission Date: 20150821
  Serious: Yes (Death, Other)
  Sender: FDA-Public Use
  Company Number: PHHY2015JP059328

PATIENT
  Age: 64 Year
  Sex: Female

DRUGS (6)
  1. BEVACIZUMAB [Suspect]
     Active Substance: BEVACIZUMAB
     Indication: MALIGNANT NEOPLASM PROGRESSION
  2. IRINOTECAN [Suspect]
     Active Substance: IRINOTECAN
     Indication: METASTASES TO LIVER
     Route: 065
  3. CAPECITABINE. [Suspect]
     Active Substance: CAPECITABINE
     Indication: RECTAL CANCER STAGE IV
     Route: 065
  4. OXALIPLATIN. [Suspect]
     Active Substance: OXALIPLATIN
     Indication: RECTAL CANCER STAGE IV
     Route: 065
  5. FOLINIC ACID [Suspect]
     Active Substance: LEUCOVORIN
     Indication: METASTASES TO LIVER
     Route: 065
  6. BEVACIZUMAB [Suspect]
     Active Substance: BEVACIZUMAB
     Indication: METASTASES TO LIVER
     Route: 065

REACTIONS (8)
  - Vomiting [Recovered/Resolved]
  - Decreased appetite [Recovered/Resolved]
  - Drug effect incomplete [Unknown]
  - Nausea [Recovered/Resolved]
  - Neutropenia [Unknown]
  - Malignant neoplasm progression [Unknown]
  - Febrile neutropenia [Unknown]
  - Respiratory failure [Fatal]
